FAERS Safety Report 19310715 (Version 1)
Quarter: 2021Q2

REPORT INFORMATION
  Report Type: Spontaneous
  Country: US (occurrence: US)
  Receive Date: 20210526
  Receipt Date: 20210526
  Transmission Date: 20210717
  Serious: Yes (Death)
  Sender: FDA-Public Use
  Company Number: US-ROCHE-2836158

PATIENT
  Sex: Female
  Weight: 87 kg

DRUGS (9)
  1. ACTIVASE [Suspect]
     Active Substance: ALTEPLASE
     Indication: HEMIPARESIS
  2. ACTIVASE [Suspect]
     Active Substance: ALTEPLASE
  3. ACTIVASE [Suspect]
     Active Substance: ALTEPLASE
  4. CYMBALTA [Concomitant]
     Active Substance: DULOXETINE HYDROCHLORIDE
     Route: 048
  5. ASPIRIN. [Concomitant]
     Active Substance: ASPIRIN
     Route: 048
  6. ACTIVASE [Suspect]
     Active Substance: ALTEPLASE
     Indication: APHASIA
     Dosage: RECEIVED ONE DOSE
     Route: 042
     Dates: start: 20210226, end: 20210226
  7. ACTIVASE [Suspect]
     Active Substance: ALTEPLASE
  8. ACTIVASE [Suspect]
     Active Substance: ALTEPLASE
     Indication: VISUAL FIELD DEFECT
  9. CARTIA XT [Concomitant]
     Active Substance: DILTIAZEM HYDROCHLORIDE
     Indication: HYPERTENSION
     Route: 048

REACTIONS (2)
  - Haemorrhagic transformation stroke [Fatal]
  - Off label use [Unknown]
